FAERS Safety Report 9467939 (Version 2)
Quarter: 2013Q3

REPORT INFORMATION
  Report Type: Spontaneous
  Country: DK (occurrence: DK)
  Receive Date: 20130821
  Receipt Date: 20130828
  Transmission Date: 20140515
  Serious: Yes (Other)
  Sender: FDA-Public Use
  Company Number: DK-SANOFI-AVENTIS-2013SA081615

PATIENT
  Age: 47 Year
  Sex: Female

DRUGS (4)
  1. TAXOTERE [Suspect]
     Indication: BREAST CANCER
     Route: 065
  2. HERCEPTIN [Suspect]
     Indication: BREAST CANCER
     Route: 065
  3. SENDOXAN [Suspect]
     Indication: BREAST CANCER
     Route: 065
  4. CAPECITABINE [Concomitant]

REACTIONS (2)
  - Lymphadenopathy [Unknown]
  - Neoplasm recurrence [Unknown]
